FAERS Safety Report 15488926 (Version 2)
Quarter: 2018Q4

REPORT INFORMATION
  Report Type: Spontaneous
  Country: AR (occurrence: AR)
  Receive Date: 20181011
  Receipt Date: 20181114
  Transmission Date: 20190205
  Serious: Yes (Other)
  Sender: FDA-Public Use
  Company Number: AR-PFIZER INC-2018407784

PATIENT
  Sex: Female

DRUGS (2)
  1. LETROZOL [Concomitant]
     Active Substance: LETROZOLE
     Dosage: UNK MG, UNK
  2. PALBOCICLIB [Suspect]
     Active Substance: PALBOCICLIB
     Dosage: 125 MG, UNK

REACTIONS (3)
  - Tumour marker increased [Unknown]
  - Oesophageal stenosis [Unknown]
  - Dysphagia [Unknown]
